FAERS Safety Report 20791655 (Version 4)
Quarter: 2022Q3

REPORT INFORMATION
  Report Type: Spontaneous
  Country: US (occurrence: US)
  Receive Date: 20220505
  Receipt Date: 20220714
  Transmission Date: 20221026
  Serious: Yes (Other)
  Sender: FDA-Public Use
  Company Number: US-ORGANON-O2205USA000430

PATIENT
  Age: 33 Year
  Sex: Female
  Weight: 118.36 kg

DRUGS (4)
  1. NEXPLANON [Suspect]
     Active Substance: ETONOGESTREL
     Indication: Contraception
     Dosage: 1 IMPLANT IN LEFT UPPER ARM OVER THE BICEPS MUSCLE
     Route: 059
     Dates: start: 20190502, end: 20220502
  2. NEXPLANON [Suspect]
     Active Substance: ETONOGESTREL
     Indication: Contraception
     Dosage: 1 IMPLANT IN LEFT UPPER ARM OVER THE BICEPS MUSCLE FOR 3 YEARS
     Route: 059
     Dates: start: 20220502, end: 20220502
  3. TRAZODONE [Concomitant]
     Active Substance: TRAZODONE HYDROCHLORIDE
     Dosage: UNK
  4. VITAMINS NOS [Concomitant]
     Active Substance: VITAMINS
     Dosage: UNK

REACTIONS (4)
  - Device expulsion [Recovered/Resolved]
  - Implant site pain [Recovered/Resolved]
  - Device placement issue [Recovered/Resolved]
  - Device placement issue [Recovered/Resolved]

NARRATIVE: CASE EVENT DATE: 20190502
